FAERS Safety Report 4686582-3 (Version None)
Quarter: 2005Q2

REPORT INFORMATION
  Report Type: 
  Country: None (occurrence: None)
  Receive Date: 20050607
  Receipt Date: 20050523
  Transmission Date: 20051028
  Serious: Yes (Hospitalization, Other)
  Sender: FDA-Public Use
  Company Number: 2005078531

PATIENT
  Age: 81 Year
  Sex: Female
  Weight: 72.1219 kg

DRUGS (7)
  1. CELEBREX [Suspect]
     Indication: ARTHRITIS
     Dosage: 100 MG (100 MG, 1 IN 1 D), ORAL
     Route: 048
  2. LIPITOR [Suspect]
     Indication: BLOOD CHOLESTEROL INCREASED
     Dosage: 10 MG (10 MG, 1 IN 1 D), ORAL
     Route: 048
     Dates: start: 20040101
  3. IMDUR [Suspect]
     Indication: CARDIAC DISORDER
     Dosage: 30 MG (30 MG, 1IN 1 D), ORAL
     Route: 048
     Dates: start: 20050101
  4. ATENOLOL [Concomitant]
  5. ULTRAM [Concomitant]
  6. ASPIRIN [Concomitant]
  7. CENTRUM (MINERALS NOS, VITAMIN NOS) [Concomitant]

REACTIONS (13)
  - ALOPECIA [None]
  - ARTHRITIS [None]
  - BLOOD CHOLESTEROL INCREASED [None]
  - BODY HEIGHT DECREASED [None]
  - CARDIAC FLUTTER [None]
  - CARDIAC PROCEDURE COMPLICATION [None]
  - CARDIOMEGALY [None]
  - CORONARY ARTERY OCCLUSION [None]
  - DRUG INEFFECTIVE [None]
  - DYSPNOEA [None]
  - OEDEMA PERIPHERAL [None]
  - PAIN IN EXTREMITY [None]
  - SPINAL COLUMN STENOSIS [None]
